FAERS Safety Report 22354755 (Version 1)
Quarter: 2023Q2

REPORT INFORMATION
  Report Type: Spontaneous
  Country: US (occurrence: None)
  Receive Date: 20230522
  Receipt Date: 20230522
  Transmission Date: 20230722
  Serious: No
  Sender: FDA-Public Use
  Company Number: None

PATIENT
  Age: 49 Year
  Sex: Female

DRUGS (1)
  1. HUMIRA [Suspect]
     Active Substance: ADALIMUMAB
     Indication: Rheumatoid arthritis
     Dosage: 14 MG EVERY 14 DAYS SUBQ
     Route: 058
     Dates: start: 201912

REACTIONS (4)
  - Accidental exposure to product [None]
  - Wrong technique in device usage process [None]
  - Injection site haemorrhage [None]
  - Product dose omission issue [None]

NARRATIVE: CASE EVENT DATE: 20230420
